FAERS Safety Report 7125008-7 (Version None)
Quarter: 2010Q4

REPORT INFORMATION
  Report Type: 
  Country: None (occurrence: None)
  Receive Date: 20101129
  Receipt Date: 20101116
  Transmission Date: 20110411
  Serious: Yes (Other)
  Sender: FDA-Public Use
  Company Number: US-SHIRE-SPV1-2010-01996

PATIENT
  Sex: Male

DRUGS (6)
  1. VYVANSE [Suspect]
     Indication: ATTENTION DEFICIT/HYPERACTIVITY DISORDER
     Dosage: 30 MG, AS REQ'D
     Route: 048
     Dates: start: 20090101, end: 20090101
  2. VYVANSE [Suspect]
     Dosage: 40 MG, AS REQ'D
     Route: 048
     Dates: start: 20090101, end: 20090101
  3. VYVANSE [Suspect]
     Dosage: 30 MG, AS REQ'D
     Route: 048
     Dates: start: 20090101, end: 20090101
  4. VYVANSE [Suspect]
     Dosage: 30 MG, AS REQ'D
     Route: 048
     Dates: start: 20100101, end: 20100101
  5. VYVANSE [Suspect]
     Dosage: 30 MG, 1X/DAY:QD
     Route: 048
     Dates: start: 20100101
  6. STRATTERA [Suspect]
     Indication: PRODUCT USED FOR UNKNOWN INDICATION

REACTIONS (12)
  - AGGRESSION [None]
  - AGITATION [None]
  - ANXIETY [None]
  - DEPRESSED MOOD [None]
  - FATIGUE [None]
  - HEADACHE [None]
  - IMPRISONMENT [None]
  - INSOMNIA [None]
  - INTENTIONAL DRUG MISUSE [None]
  - PSYCHOTIC DISORDER [None]
  - SUICIDE ATTEMPT [None]
  - WEIGHT DECREASED [None]
